FAERS Safety Report 8875571 (Version 3)
Quarter: 2013Q4

REPORT INFORMATION
  Report Type: Report from Study
  Country: CA (occurrence: CA)
  Receive Date: 20121023
  Receipt Date: 20131224
  Transmission Date: 20140711
  Serious: Yes (Other)
  Sender: FDA-Public Use
  Company Number: PHHY2012CA094266

PATIENT
  Sex: Female

DRUGS (1)
  1. GILENYA [Suspect]
     Indication: RELAPSING-REMITTING MULTIPLE SCLEROSIS
     Dosage: 0.5 MG, QD
     Route: 048
     Dates: start: 20110623, end: 20130304

REACTIONS (4)
  - Breast pain [Not Recovered/Not Resolved]
  - Breast mass [Unknown]
  - Back pain [Not Recovered/Not Resolved]
  - Nasopharyngitis [Recovering/Resolving]
